FAERS Safety Report 7429301-X (Version None)
Quarter: 2011Q2

REPORT INFORMATION
  Report Type: 
  Country: None (occurrence: None)
  Receive Date: 20110418
  Receipt Date: 20110418
  Transmission Date: 20111010
  Serious: No
  Sender: FDA-Public Use
  Company Number: None

PATIENT
  Age: 36 Year
  Sex: Female
  Weight: 70.7611 kg

DRUGS (1)
  1. APIDRA [Suspect]
     Indication: TYPE 1 DIABETES MELLITUS

REACTIONS (2)
  - PRODUCT QUALITY ISSUE [None]
  - BLOOD GLUCOSE FLUCTUATION [None]
